FAERS Safety Report 21750943 (Version 1)
Quarter: 2022Q4

REPORT INFORMATION
  Report Type: Spontaneous
  Country: JP (occurrence: JP)
  Receive Date: 20221219
  Receipt Date: 20221219
  Transmission Date: 20230113
  Serious: Yes (Hospitalization, Other)
  Sender: FDA-Public Use
  Company Number: JP-BRISTOL-MYERS SQUIBB COMPANY-2022-155444

PATIENT
  Age: 9 Decade

DRUGS (3)
  1. VIDAZA [Suspect]
     Active Substance: AZACITIDINE
     Indication: Acute myeloid leukaemia
     Route: 042
  2. VIDAZA [Suspect]
     Active Substance: AZACITIDINE
     Dosage: RESTARTED AT AN UNKNOWN DOSE
     Route: 042
  3. VENCLEXTA [Suspect]
     Active Substance: VENETOCLAX
     Indication: Acute myeloid leukaemia

REACTIONS (3)
  - Myelosuppression [Not Recovered/Not Resolved]
  - Decreased activity [Not Recovered/Not Resolved]
  - Cerebral infarction [Not Recovered/Not Resolved]
